FAERS Safety Report 6601110-0 (Version None)
Quarter: 2010Q1

REPORT INFORMATION
  Report Type: 
  Country: None (occurrence: None)
  Receive Date: 20100225
  Receipt Date: 20100222
  Transmission Date: 20100710
  Serious: Yes (Death, Hospitalization)
  Sender: FDA-Public Use
  Company Number: PHEH2009US15296

PATIENT
  Sex: Male
  Weight: 103.6 kg

DRUGS (8)
  1. EXJADE [Suspect]
     Indication: LYMPHATIC DISORDER
     Dosage: 3500 MG, QD
     Route: 048
     Dates: start: 20080228, end: 20090908
  2. EXJADE [Suspect]
     Indication: IRON OVERLOAD
  3. AMIODARONE HCL [Concomitant]
     Indication: ARRHYTHMIA
     Dosage: 200 MG, BID
     Route: 048
  4. METOPROLOL TARTRATE [Concomitant]
     Dosage: 50 MG, BID
     Route: 048
  5. COUMADIN [Concomitant]
     Dosage: 1 MG, QD
     Route: 048
  6. FINASTERIDE [Concomitant]
     Indication: BENIGN PROSTATIC HYPERPLASIA
     Dosage: 5 MG DAILY
     Route: 048
  7. OMEPRAZOLE [Concomitant]
     Dosage: 20 MG, UNK
  8. OXYCODONE [Concomitant]
     Dosage: 5 MG, PRN

REACTIONS (8)
  - CONFUSIONAL STATE [None]
  - DEATH [None]
  - DIZZINESS [None]
  - DYSARTHRIA [None]
  - HEADACHE [None]
  - PYREXIA [None]
  - RUPTURED CEREBRAL ANEURYSM [None]
  - VISUAL IMPAIRMENT [None]
